FAERS Safety Report 7217800-5 (Version None)
Quarter: 2010Q4

REPORT INFORMATION
  Report Type: 
  Country: None (occurrence: None)
  Receive Date: 20101230
  Receipt Date: 20101021
  Transmission Date: 20110411
  Serious: Yes (Hospitalization)
  Sender: FDA-Public Use
  Company Number: LEO-2010-01155

PATIENT
  Age: 33 Year
  Sex: Male

DRUGS (1)
  1. INNOHEP [Suspect]
     Indication: DEEP VEIN THROMBOSIS
     Dosage: 0.8 ML, SUBCUTANEOUS
     Route: 058
     Dates: start: 19980206, end: 19980219

REACTIONS (2)
  - CONDITION AGGRAVATED [None]
  - DEEP VEIN THROMBOSIS [None]
